FAERS Safety Report 13414984 (Version 1)
Quarter: 2017Q2

REPORT INFORMATION
  Report Type: Spontaneous
  Country: US (occurrence: US)
  Receive Date: 20170407
  Receipt Date: 20170407
  Transmission Date: 20170830
  Serious: Yes (Hospitalization, Other)
  Sender: FDA-Public Use
  Company Number: US-GLAXOSMITHKLINE-US2017048273

PATIENT
  Age: 65 Year
  Sex: Male

DRUGS (1)
  1. EPIVIR HBV [Suspect]
     Active Substance: LAMIVUDINE
     Indication: LIVER TRANSPLANT
     Dosage: UNK
     Dates: start: 2003

REACTIONS (7)
  - Myocardial infarction [Recovered/Resolved]
  - Pain [Not Recovered/Not Resolved]
  - Product use in unapproved indication [Unknown]
  - Coronary artery bypass [Recovered/Resolved]
  - Coronary artery occlusion [Recovered/Resolved]
  - Asthenia [Not Recovered/Not Resolved]
  - Coma [Recovered/Resolved]

NARRATIVE: CASE EVENT DATE: 2003
